FAERS Safety Report 17993695 (Version 2)
Quarter: 2022Q1

REPORT INFORMATION
  Report Type: Spontaneous
  Country: US (occurrence: US)
  Receive Date: 20200708
  Receipt Date: 20220225
  Transmission Date: 20220423
  Serious: Yes (Other)
  Sender: FDA-Public Use
  Company Number: US-GLAXOSMITHKLINE-US2020122958

PATIENT
  Sex: Male

DRUGS (6)
  1. RANITIDINE [Suspect]
     Active Substance: RANITIDINE
  2. ZANTAC [Suspect]
     Active Substance: RANITIDINE HYDROCHLORIDE
  3. ZANTAC [Suspect]
     Active Substance: RANITIDINE HYDROCHLORIDE
     Indication: Angioedema
     Dosage: 300 MG, QD
     Route: 065
     Dates: start: 200011, end: 202002
  4. ZANTAC [Suspect]
     Active Substance: RANITIDINE HYDROCHLORIDE
     Indication: Angioedema
     Dosage: 300 MG, QD
     Route: 065
     Dates: start: 200011, end: 202002
  5. RANITIDINE [Suspect]
     Active Substance: RANITIDINE
     Indication: Angioedema
     Dosage: 300 MG, QD
     Route: 065
     Dates: start: 200011, end: 202002
  6. RANITIDINE [Suspect]
     Active Substance: RANITIDINE
     Indication: Angioedema
     Dosage: 300 MG, QD
     Route: 065
     Dates: start: 200011, end: 202002

REACTIONS (1)
  - Prostate cancer [Unknown]
